FAERS Safety Report 7404543-8 (Version None)
Quarter: 2011Q2

REPORT INFORMATION
  Report Type: 
  Country: None (occurrence: None)
  Receive Date: 20110411
  Receipt Date: 20110328
  Transmission Date: 20111010
  Serious: Yes (Hospitalization)
  Sender: FDA-Public Use
  Company Number: JP-MYLANLABS-2011S1006577

PATIENT
  Age: 16 Year

DRUGS (10)
  1. DACARBAZINE [Suspect]
     Indication: HODGKIN'S DISEASE
     Route: 065
  2. CYCLOPHOSPHAMIDE [Suspect]
     Indication: HODGKIN'S DISEASE
     Route: 065
  3. PROCARBAZINE [Suspect]
     Indication: HODGKIN'S DISEASE
     Route: 065
  4. ETOPOSIDE [Suspect]
     Indication: HODGKIN'S DISEASE
     Route: 065
  5. PREDNISONE [Suspect]
     Indication: HODGKIN'S DISEASE
     Route: 065
  6. VINCRISTINE [Suspect]
     Indication: HODGKIN'S DISEASE
     Route: 065
  7. DOXORUBICIN [Suspect]
     Indication: HODGKIN'S DISEASE
     Route: 065
  8. VINBLASTINE [Suspect]
     Indication: HODGKIN'S DISEASE
     Route: 065
  9. BLEOMYCIN [Suspect]
     Indication: HODGKIN'S DISEASE
     Route: 065
  10. BUSULFAN [Suspect]
     Indication: HODGKIN'S DISEASE
     Route: 065

REACTIONS (1)
  - PROGRESSIVE MULTIFOCAL LEUKOENCEPHALOPATHY [None]
